FAERS Safety Report 5410576-3 (Version None)
Quarter: 2007Q3

REPORT INFORMATION
  Report Type: 
  Country: None (occurrence: None)
  Receive Date: 20070810
  Receipt Date: 20070322
  Transmission Date: 20080115
  Serious: No
  Sender: FDA-Public Use
  Company Number: A0644267A

PATIENT
  Age: 78 Year
  Sex: Male

DRUGS (12)
  1. PAXIL [Suspect]
     Indication: DEPRESSION
     Dosage: 20MG PER DAY
     Route: 048
  2. ADALAT [Concomitant]
  3. ALTACE [Concomitant]
  4. AMARYL [Concomitant]
  5. AMBIEN [Concomitant]
  6. AVANDIA [Concomitant]
  7. CELEBREX [Concomitant]
  8. LIPITOR [Concomitant]
  9. LIPID [Concomitant]
  10. NEXIUM [Concomitant]
  11. QUININE SULFATE [Concomitant]
  12. SINEMET [Concomitant]

REACTIONS (6)
  - BLOOD PRESSURE INCREASED [None]
  - GASTRIC DISORDER [None]
  - HEADACHE [None]
  - INSOMNIA [None]
  - LOSS OF LIBIDO [None]
  - WEIGHT DECREASED [None]
